FAERS Safety Report 20082975 (Version 2)
Quarter: 2021Q4

REPORT INFORMATION
  Report Type: Spontaneous
  Country: US (occurrence: US)
  Receive Date: 20211117
  Receipt Date: 20211210
  Transmission Date: 20220303
  Serious: Yes (Hospitalization, Other)
  Sender: FDA-Public Use
  Company Number: US-MALLINCKRODT-T202104149

PATIENT
  Sex: Female

DRUGS (1)
  1. H.P. ACTHAR [Suspect]
     Active Substance: CORTICOTROPIN
     Indication: Uveitis
     Dosage: 1 MILLILITER (80 UNITS), EVERY 3 DAYS
     Route: 058
     Dates: start: 202108, end: 2021

REACTIONS (5)
  - Eye operation [Unknown]
  - Cardio-respiratory arrest [Unknown]
  - Abnormal behaviour [Not Recovered/Not Resolved]
  - Irritability [Not Recovered/Not Resolved]
  - Mood altered [Not Recovered/Not Resolved]

NARRATIVE: CASE EVENT DATE: 20210101
